FAERS Safety Report 5911160-5 (Version None)
Quarter: 2008Q4

REPORT INFORMATION
  Report Type: 
  Country: None (occurrence: None)
  Receive Date: 20081007
  Receipt Date: 20080407
  Transmission Date: 20090506
  Serious: No
  Sender: FDA-Public Use
  Company Number: US-BRISTOL-MYERS SQUIBB COMPANY-14143267

PATIENT
  Sex: Female

DRUGS (3)
  1. AVAPRO [Suspect]
  2. LOPRESSOR [Concomitant]
  3. WARFARIN SODIUM [Concomitant]

REACTIONS (5)
  - DIARRHOEA [None]
  - DYSPEPSIA [None]
  - SWELLING [None]
  - VOMITING [None]
  - WHITE BLOOD CELLS URINE [None]
